FAERS Safety Report 6199536-5 (Version None)
Quarter: 2009Q2

REPORT INFORMATION
  Report Type: 
  Country: None (occurrence: None)
  Receive Date: 20090522
  Receipt Date: 20090514
  Transmission Date: 20091009
  Serious: Yes (Other)
  Sender: FDA-Public Use
  Company Number: A0784323A

PATIENT
  Age: 66 Year
  Sex: Male

DRUGS (5)
  1. ADVAIR HFA [Suspect]
     Indication: ASTHMA
     Dosage: 1PUFF TWICE PER DAY
     Route: 055
     Dates: start: 20050101
  2. CLARINEX [Concomitant]
  3. PREVACID [Concomitant]
  4. FLOMAX [Concomitant]
  5. FINASTERIDE [Concomitant]

REACTIONS (6)
  - APHONIA [None]
  - CHOKING [None]
  - COUGH [None]
  - DYSPHAGIA [None]
  - MUSCLE SPASMS [None]
  - NASOPHARYNGITIS [None]
